FAERS Safety Report 24557972 (Version 3)
Quarter: 2024Q4

REPORT INFORMATION
  Report Type: Report from Study
  Country: US (occurrence: US)
  Receive Date: 20241028
  Receipt Date: 20241114
  Transmission Date: 20250115
  Serious: Yes (Hospitalization, Other)
  Sender: PFIZER
  Company Number: US-PFIZER INC-PV202400138692

PATIENT
  Age: 57 Year
  Sex: Female
  Weight: 71.202 kg

DRUGS (12)
  1. VOXELOTOR [Suspect]
     Active Substance: VOXELOTOR
     Indication: Sickle cell disease
     Dosage: 500 MG, 3, DAILY
     Route: 048
     Dates: start: 20210423
  2. ALBUTEROL SULFATE [Concomitant]
     Active Substance: ALBUTEROL SULFATE
     Indication: Dyspnoea
     Dosage: 90 MCG/ACTUATION 2 PUFFS INHALATION EVERY 4 (FOUR) HOURS PRN
     Route: 055
     Dates: start: 20240223, end: 20240529
  3. BUDESONIDE\FORMOTEROL FUMARATE [Concomitant]
     Active Substance: BUDESONIDE\FORMOTEROL FUMARATE
     Indication: Dyspnoea
     Dosage: [BUDESONIDE 160MCG]/[FORMOTEROL FUMARATE 4.5MCG] /ACTUATION 2 PUFFS INHALATION 2 (TWO) TIMES A DAY,
     Route: 055
     Dates: start: 20240223
  4. VITAMIN D3 [Concomitant]
     Active Substance: CHOLECALCIFEROL
     Indication: Vitamin D deficiency
     Dosage: 2000 IU, DAILY
     Route: 048
     Dates: start: 20240223
  5. GABAPENTIN [Concomitant]
     Active Substance: GABAPENTIN
     Dosage: 300 MG, 3X/DAY
     Route: 048
     Dates: start: 20240410
  6. HYDROXYUREA [Concomitant]
     Active Substance: HYDROXYUREA
     Dosage: 500 MG, DAILY
     Route: 048
     Dates: start: 20240126
  7. MONTELUKAST SODIUM [Concomitant]
     Active Substance: MONTELUKAST SODIUM
     Dosage: 10 MG, NIGHTLY
     Route: 048
     Dates: start: 20240223
  8. OXYCODONE HYDROCHLORIDE [Concomitant]
     Active Substance: OXYCODONE HYDROCHLORIDE
     Dosage: UNK
     Dates: start: 20240410
  9. DEFERASIROX [Concomitant]
     Active Substance: DEFERASIROX
     Dosage: 1440 MG, DAILY
     Route: 048
     Dates: start: 20230726
  10. DICLOFENAC SODIUM [Concomitant]
     Active Substance: DICLOFENAC SODIUM
     Indication: Analgesic therapy
     Dosage: 1 % APPLY TO BOTH HIP/KNEE 3 TIMES DAILY AS NEEDED, MAXIMUM DAILY DOSE 16 GRAMS
     Dates: start: 20231101
  11. FLUTICASONE PROPIONATE [Concomitant]
     Active Substance: FLUTICASONE PROPIONATE
     Dosage: 50 UG/ACTUATION 1 SPRAY EACH NOSTRIL DAILY
     Dates: start: 20231101
  12. FOLIC ACID [Concomitant]
     Active Substance: FOLIC ACID
     Dosage: 1 MG, DAILY
     Route: 048
     Dates: start: 20240223

REACTIONS (2)
  - Vomiting [Recovered/Resolved]
  - Pain [Recovered/Resolved]

NARRATIVE: CASE EVENT DATE: 20240502
